FAERS Safety Report 20741727 (Version 2)
Quarter: 2022Q2

REPORT INFORMATION
  Report Type: Spontaneous
  Country: MA (occurrence: MA)
  Receive Date: 20220423
  Receipt Date: 20220512
  Transmission Date: 20220721
  Serious: Yes (Hospitalization)
  Sender: FDA-Public Use
  Company Number: MA-LUPIN PHARMACEUTICALS INC.-2022-05884

PATIENT
  Age: 31 Year
  Sex: Male

DRUGS (1)
  1. ESCITALOPRAM [Suspect]
     Active Substance: ESCITALOPRAM OXALATE
     Indication: Depression
     Dosage: UNK
     Route: 065

REACTIONS (5)
  - Microscopic polyangiitis [Recovered/Resolved]
  - Renal disorder [Recovered/Resolved]
  - Cutaneous symptom [Recovered/Resolved]
  - Neurological symptom [Recovering/Resolving]
  - Normochromic normocytic anaemia [Recovering/Resolving]
